FAERS Safety Report 21795118 (Version 1)
Quarter: 2022Q4

REPORT INFORMATION
  Report Type: Spontaneous
  Country: DE (occurrence: DE)
  Receive Date: 20221229
  Receipt Date: 20221229
  Transmission Date: 20230112
  Serious: Yes (Other)
  Sender: FDA-Public Use
  Company Number: DE-TEVA-2022-DE-2839083

PATIENT
  Sex: Female

DRUGS (1)
  1. CIPROFLOXACIN HYDROCHLORIDE [Suspect]
     Active Substance: CIPROFLOXACIN HYDROCHLORIDE
     Indication: Product used for unknown indication
     Dosage: DRUG DOSAGE: 2X 500 MG, FOR 5 DAYS
     Route: 065
     Dates: start: 2022

REACTIONS (44)
  - Osteochondrosis [Unknown]
  - Spinal cord disorder [Unknown]
  - Paraesthesia [Not Recovered/Not Resolved]
  - Muscle strain [Unknown]
  - Hypoaesthesia [Unknown]
  - Muscular weakness [Unknown]
  - Arthralgia [Unknown]
  - Muscular weakness [Unknown]
  - Pain in extremity [Unknown]
  - Ankle deformity [Unknown]
  - Crepitations [Unknown]
  - Musculoskeletal discomfort [Unknown]
  - Back pain [Unknown]
  - Burning sensation [Unknown]
  - Paraesthesia [Unknown]
  - Intervertebral disc protrusion [Unknown]
  - Vasodilatation [Unknown]
  - Varicose vein [Unknown]
  - Varicose vein [Unknown]
  - Collagen disorder [Unknown]
  - Weight decreased [Unknown]
  - Skin wrinkling [Unknown]
  - Mucosal disorder [Unknown]
  - Gingival bleeding [Unknown]
  - Tendon disorder [Unknown]
  - Nausea [Unknown]
  - Decreased appetite [Unknown]
  - Fatigue [Unknown]
  - Listless [Unknown]
  - Anxiety [Unknown]
  - Depression [Unknown]
  - Panic attack [Unknown]
  - Heart rate increased [Unknown]
  - Respiratory rate increased [Unknown]
  - Headache [Unknown]
  - Dizziness [Unknown]
  - Head discomfort [Unknown]
  - Disturbance in attention [Unknown]
  - Rash erythematous [Unknown]
  - Intraocular pressure test [Unknown]
  - Impaired quality of life [Unknown]
  - Weight bearing difficulty [Unknown]
  - Eye pain [Unknown]
  - Ocular discomfort [Unknown]

NARRATIVE: CASE EVENT DATE: 20220101
